FAERS Safety Report 14487407 (Version 6)
Quarter: 2018Q3

REPORT INFORMATION
  Report Type: Report from Study
  Country: CL (occurrence: CL)
  Receive Date: 20180205
  Receipt Date: 20180718
  Transmission Date: 20181010
  Serious: Yes (Hospitalization, Other)
  Sender: FDA-Public Use
  Company Number: CL-SA-2018SA012319

PATIENT
  Age: 28 Year
  Sex: Male

DRUGS (2)
  1. EUTIROX [Concomitant]
     Active Substance: LEVOTHYROXINE SODIUM
     Indication: THYROID DISORDER
     Dosage: 125 UG,QD
     Route: 048
  2. LEMTRADA [Suspect]
     Active Substance: ALEMTUZUMAB
     Indication: RELAPSING-REMITTING MULTIPLE SCLEROSIS
     Dosage: 12 MG,QD
     Route: 041
     Dates: start: 20171120, end: 20171122

REACTIONS (6)
  - Thyroid calcification [Not Recovered/Not Resolved]
  - Thyroid mass [Recovered/Resolved]
  - Papillary thyroid cancer [Recovered/Resolved]
  - Hyperthyroidism [Not Recovered/Not Resolved]
  - Goitre [Recovered/Resolved]
  - Platelet count abnormal [Not Recovered/Not Resolved]
